FAERS Safety Report 4495211-3 (Version None)
Quarter: 2004Q4

REPORT INFORMATION
  Report Type: 
  Country: None (occurrence: None)
  Receive Date: 20041108
  Receipt Date: 20041027
  Transmission Date: 20050328
  Serious: Yes (Hospitalization)
  Sender: FDA-Public Use
  Company Number: 200414114FR

PATIENT
  Age: 53 Year
  Sex: Female

DRUGS (3)
  1. ARAVA [Suspect]
     Indication: RHEUMATOID ARTHRITIS
     Route: 048
     Dates: start: 20030101, end: 20041001
  2. ENBREL [Suspect]
     Indication: RHEUMATOID ARTHRITIS
     Route: 058
     Dates: start: 20040701, end: 20041001
  3. CORTANCYL [Concomitant]
     Route: 048

REACTIONS (5)
  - ECCHYMOSIS [None]
  - INFLAMMATION [None]
  - PAIN IN EXTREMITY [None]
  - PURPURA [None]
  - THERAPEUTIC RESPONSE DECREASED [None]
